FAERS Safety Report 12891844 (Version 1)
Quarter: 2016Q4

REPORT INFORMATION
  Report Type: Spontaneous
  Country: KP (occurrence: KP)
  Receive Date: 20161028
  Receipt Date: 20161028
  Transmission Date: 20170207
  Serious: Yes (Death, Other)
  Sender: FDA-Public Use
  Company Number: KP-SUN PHARMACEUTICAL INDUSTRIES LTD-2016RR-126830

PATIENT
  Age: 60 Year
  Sex: Female

DRUGS (4)
  1. CAPECITABINE. [Suspect]
     Active Substance: CAPECITABINE
     Indication: GALLBLADDER CANCER
     Dosage: 2000 MG/M2, ON DAY 1 TO DAY 14 Q 21 DAYS
     Route: 065
  2. GEMCITABINE [Suspect]
     Active Substance: GEMCITABINE\GEMCITABINE HYDROCHLORIDE
     Indication: GALLBLADDER CANCER
     Dosage: 1 G/M2, ON DAY 1, DAY 8 Q 21 DAYS
     Route: 065
  3. CISPLATIN. [Suspect]
     Active Substance: CISPLATIN
     Dosage: 60 MG/M2, ON DAY 1, DAY 1 Q 21
     Route: 065
  4. CISPLATIN. [Suspect]
     Active Substance: CISPLATIN
     Indication: GALLBLADDER CANCER
     Dosage: 25 MG/M2, ON DAY 1, DAY 8 Q 21 DAYS
     Route: 065

REACTIONS (10)
  - Hepatic infarction [Unknown]
  - Dehydration [Not Recovered/Not Resolved]
  - Portal vein thrombosis [Not Recovered/Not Resolved]
  - Pneumonia [Recovering/Resolving]
  - Seizure [Unknown]
  - Metabolic encephalopathy [Fatal]
  - Disease progression [Unknown]
  - Hypotension [Unknown]
  - Cardiac arrest [Fatal]
  - Metabolic acidosis [Not Recovered/Not Resolved]
